FAERS Safety Report 12878036 (Version 1)
Quarter: 2016Q4

REPORT INFORMATION
  Report Type: Spontaneous
  Country: US (occurrence: US)
  Receive Date: 20161024
  Receipt Date: 20161024
  Transmission Date: 20170207
  Serious: Yes (Other)
  Sender: FDA-Public Use
  Company Number: US-AMGEN-USASP2016144454

PATIENT
  Sex: Female

DRUGS (1)
  1. PROLIA [Suspect]
     Active Substance: DENOSUMAB
     Indication: OSTEOPOROSIS POSTMENOPAUSAL
     Dosage: UNK
     Route: 065

REACTIONS (6)
  - Bone marrow oedema [Unknown]
  - Osteonecrosis [Unknown]
  - Spinal disorder [Unknown]
  - Muscle strain [Unknown]
  - Surgical failure [Unknown]
  - Spinal decompression [Not Recovered/Not Resolved]

NARRATIVE: CASE EVENT DATE: 2016
